FAERS Safety Report 6007874-1 (Version None)
Quarter: 2008Q4

REPORT INFORMATION
  Report Type: 
  Country: None (occurrence: None)
  Receive Date: 20081217
  Receipt Date: 20080707
  Transmission Date: 20090506
  Serious: No
  Sender: FDA-Public Use
  Company Number: US-ASTRAZENECA-2008UW13628

PATIENT
  Age: 81 Year
  Sex: Female
  Weight: 99.8 kg

DRUGS (9)
  1. CRESTOR [Suspect]
     Indication: BLOOD CHOLESTEROL INCREASED
     Dosage: 5MG 1/2 TAB  EVERY OTHER DAY
     Route: 048
  2. MOBIC [Concomitant]
  3. NEXIUM [Concomitant]
     Route: 048
  4. POTASSIUM CHLORIDE [Concomitant]
  5. SYNTHROID [Concomitant]
  6. ATACAND [Concomitant]
  7. LASIX [Concomitant]
  8. EFFEXOR [Concomitant]
  9. OSCALS [Concomitant]

REACTIONS (1)
  - DYSPEPSIA [None]
